FAERS Safety Report 7215269-8 (Version None)
Quarter: 2011Q1

REPORT INFORMATION
  Report Type: 
  Country: None (occurrence: None)
  Receive Date: 20110107
  Receipt Date: 20110104
  Transmission Date: 20110831
  Serious: Yes (Death)
  Sender: FDA-Public Use
  Company Number: US-KINGPHARMUSA00001-K201100017

PATIENT
  Age: 19 Year
  Sex: Female

DRUGS (3)
  1. HALOPERIDOL [Suspect]
     Indication: COMPLETED SUICIDE
     Dosage: UNK
  2. CITALOPRAM [Suspect]
     Indication: COMPLETED SUICIDE
     Dosage: UNK
  3. SKELAXIN [Suspect]
     Indication: COMPLETED SUICIDE
     Dosage: UNK

REACTIONS (1)
  - COMPLETED SUICIDE [None]
